FAERS Safety Report 22255815 (Version 1)
Quarter: 2023Q2

REPORT INFORMATION
  Report Type: Spontaneous
  Country: US (occurrence: US)
  Receive Date: 20230426
  Receipt Date: 20230426
  Transmission Date: 20230722
  Serious: No
  Sender: FDA-Public Use
  Company Number: US-JNJFOC-20230431011

PATIENT
  Age: 88 Year
  Sex: Female

DRUGS (2)
  1. WOMENS ROGAINE [Suspect]
     Active Substance: MINOXIDIL
     Indication: Alopecia
     Dosage: TWICE A DAY BUT NOW I AM USING IT ONCE, 1PUMP
     Route: 065
     Dates: start: 202210
  2. WOMENS ROGAINE [Suspect]
     Active Substance: MINOXIDIL
     Dosage: 1PUMP
     Route: 065
     Dates: start: 2023

REACTIONS (2)
  - Hair growth abnormal [Recovered/Resolved]
  - Incorrect dose administered [Unknown]

NARRATIVE: CASE EVENT DATE: 20221001
